FAERS Safety Report 22837240 (Version 2)
Quarter: 2023Q4

REPORT INFORMATION
  Report Type: Spontaneous
  Country: US (occurrence: US)
  Receive Date: 20230818
  Receipt Date: 20231005
  Transmission Date: 20240109
  Serious: Yes (Hospitalization)
  Sender: FDA-Public Use
  Company Number: US-BAYER-2023A115159

PATIENT
  Age: 64 Year
  Sex: Female

DRUGS (20)
  1. ADEMPAS [Suspect]
     Active Substance: RIOCIGUAT
     Indication: Pulmonary arterial hypertension
     Dosage: UNK
  2. ADEMPAS [Suspect]
     Active Substance: RIOCIGUAT
     Indication: Pulmonary arterial hypertension
     Dosage: 2.5 MG, TID
     Route: 048
     Dates: start: 20211229, end: 20230927
  3. UPTRAVI [Concomitant]
     Active Substance: SELEXIPAG
     Indication: Pulmonary arterial hypertension
  4. ATORVASTATIN [Concomitant]
     Active Substance: ATORVASTATIN
  5. HUMULIN R [Concomitant]
     Active Substance: INSULIN HUMAN
  6. INSULIN HUMAN [Concomitant]
     Active Substance: INSULIN HUMAN
  7. PANTOPRAZOLE [Concomitant]
     Active Substance: PANTOPRAZOLE
  8. FERROUS SULFATE [Concomitant]
     Active Substance: FERROUS SULFATE
  9. FOLIC ACID [Concomitant]
     Active Substance: FOLIC ACID
  10. ASCORBIC ACID [Concomitant]
     Active Substance: ASCORBIC ACID
  11. METOPROLOL [Concomitant]
     Active Substance: METOPROLOL
  12. TORSEMIDE [Concomitant]
     Active Substance: TORSEMIDE
  13. ZINC LOZENGES [ASCORBIC ACID;ECHINACEA PURPUREA;ZINC CITRATE;ZINC [Concomitant]
  14. VITAMIN D2 [Concomitant]
     Active Substance: ERGOCALCIFEROL
  15. LOPERAMIDE [Concomitant]
     Active Substance: LOPERAMIDE
  16. LACTOBACILLUS ACIDOPHILUS [Concomitant]
     Active Substance: LACTOBACILLUS ACIDOPHILUS
  17. CITALOPRAM [Concomitant]
     Active Substance: CITALOPRAM HYDROBROMIDE
  18. GABAPENTIN [Concomitant]
     Active Substance: GABAPENTIN
  19. DIGOXIN [Concomitant]
     Active Substance: DIGOXIN
  20. ASPIRIN [Concomitant]
     Active Substance: ASPIRIN

REACTIONS (3)
  - Anaemia [None]
  - Haemoglobin decreased [Recovering/Resolving]
  - Anaemia [Recovered/Resolved]

NARRATIVE: CASE EVENT DATE: 20230724
